FAERS Safety Report 5026687-0 (Version None)
Quarter: 2006Q2

REPORT INFORMATION
  Report Type: 
  Country: None (occurrence: None)
  Receive Date: 20060426
  Receipt Date: 20060315
  Transmission Date: 20061013
  Serious: Yes (Other)
  Sender: FDA-Public Use
  Company Number: 2006037325

PATIENT
  Age: 63 Year
  Sex: Male
  Weight: 66.2252 kg

DRUGS (1)
  1. LYRICA [Suspect]
     Indication: NEUROPATHY
     Dosage: 75 MG (75 MG, 1 IN 1 D), ORAL
     Route: 048
     Dates: start: 20060306

REACTIONS (1)
  - BALANCE DISORDER [None]
